FAERS Safety Report 21675932 (Version 2)
Quarter: 2022Q4

REPORT INFORMATION
  Report Type: Spontaneous
  Country: JP (occurrence: JP)
  Receive Date: 20221202
  Receipt Date: 20221230
  Transmission Date: 20230113
  Serious: Yes (Hospitalization)
  Sender: FDA-Public Use
  Company Number: JP-NEUROCRINE BIOSCIENCES INC.-2022NBI06147

PATIENT

DRUGS (5)
  1. VALBENAZINE [Suspect]
     Active Substance: VALBENAZINE
     Indication: Tardive dyskinesia
     Dosage: 80 MILLIGRAM, QD
     Route: 048
     Dates: start: 20220812
  2. DAYVIGO [Concomitant]
     Active Substance: LEMBOREXANT
  3. LEVOMEPROMAZINE MALEATE [Concomitant]
     Active Substance: LEVOMEPROMAZINE MALEATE
  4. LATUDA [Concomitant]
     Active Substance: LURASIDONE HYDROCHLORIDE
  5. NITRAZEPAM [Concomitant]
     Active Substance: NITRAZEPAM

REACTIONS (4)
  - Hallucination [Unknown]
  - Delusion [Unknown]
  - Agitation [Unknown]
  - Somnolence [Unknown]

NARRATIVE: CASE EVENT DATE: 20220824
